FAERS Safety Report 4697345-7 (Version None)
Quarter: 2005Q2

REPORT INFORMATION
  Report Type: 
  Country: None (occurrence: None)
  Receive Date: 20050620
  Receipt Date: 20050602
  Transmission Date: 20051028
  Serious: Yes (Other)
  Sender: FDA-Public Use
  Company Number: DSA_26609_2005

PATIENT
  Age: 67 Year
  Sex: Male

DRUGS (5)
  1. DILTIAZEM [Suspect]
     Indication: ANGINA PECTORIS
     Dosage: 180 MG Q DAY PO
     Route: 048
     Dates: start: 19880710, end: 19880722
  2. PREDNISONE [Suspect]
     Dosage: 10 MG Q DAY PO
     Route: 048
  3. AMIODARONE HYDROCHLORIDE [Suspect]
     Dosage: 1.2 G Q DAY PO
     Route: 048
     Dates: start: 19880717, end: 19880722
  4. PERSANTIN [Suspect]
     Dosage: 300 MG Q DAY PO
     Route: 048
     Dates: start: 19880710, end: 19880722
  5. ASPIRIN [Suspect]
     Dosage: 300 MG Q DAY PO
     Route: 048
     Dates: start: 19880710, end: 19880722

REACTIONS (1)
  - CEREBRAL INFARCTION [None]
